FAERS Safety Report 6649129-8 (Version None)
Quarter: 2010Q1

REPORT INFORMATION
  Report Type: 
  Country: None (occurrence: None)
  Receive Date: 20100322
  Receipt Date: 20100309
  Transmission Date: 20100710
  Serious: Yes (Death, Hospitalization)
  Sender: FDA-Public Use
  Company Number: 96440

PATIENT
  Age: 49 Year
  Sex: Female
  Weight: 60 kg

DRUGS (1)
  1. ADRIAMYCIN (DOXORUBICIN) INJ. USP 10MG/5ML-BEDFORD LABS, INC. [Suspect]
     Indication: BREAST CANCER
     Dosage: IV
     Route: 042
     Dates: start: 20100210

REACTIONS (6)
  - ABDOMINAL PAIN [None]
  - CAECITIS [None]
  - CLOSTRIDIUM DIFFICILE SEPSIS [None]
  - NAUSEA [None]
  - SEPTIC SHOCK [None]
  - VOMITING [None]
